FAERS Safety Report 6897114-3 (Version None)
Quarter: 2010Q3

REPORT INFORMATION
  Report Type: 
  Country: None (occurrence: None)
  Receive Date: 20100802
  Receipt Date: 20070329
  Transmission Date: 20110219
  Serious: No
  Sender: FDA-Public Use
  Company Number: US-PFIZER INC-2007026253

PATIENT
  Sex: Male
  Weight: 104.3 kg

DRUGS (9)
  1. LYRICA [Suspect]
     Indication: NEUROPATHY PERIPHERAL
     Route: 048
     Dates: start: 20070101
  2. LYRICA [Suspect]
     Indication: SPINAL COLUMN STENOSIS
  3. BETAPACE [Concomitant]
  4. GLUCOPHAGE [Concomitant]
  5. COZAAR [Concomitant]
  6. TRICOR [Concomitant]
  7. PREVACID [Concomitant]
  8. DYAZIDE [Concomitant]
  9. COUMADIN [Concomitant]

REACTIONS (1)
  - DIARRHOEA [None]
